FAERS Safety Report 8048376-0 (Version None)
Quarter: 2012Q1

REPORT INFORMATION
  Report Type: 
  Country: None (occurrence: None)
  Receive Date: 20120117
  Receipt Date: 20120111
  Transmission Date: 20120608
  Serious: No
  Sender: FDA-Public Use
  Company Number: US-PFIZER INC-2012008871

PATIENT
  Sex: Female
  Weight: 51.247 kg

DRUGS (3)
  1. NIFEDIPINE [Suspect]
     Indication: HYPERTENSION
     Dosage: 30 MG, 2X/DAY
     Route: 048
     Dates: start: 20110101
  2. LIPITOR [Suspect]
     Indication: HYPERTENSION
     Dosage: UNKNOWN DOSE ONE TABLET A DAY ORALLY AND HALF A TABLET OTHER DAY
     Route: 048
  3. TOPROL-XL [Concomitant]
     Indication: ATRIAL FIBRILLATION
     Dosage: HALF OF 10 MG TABLET, DAILY
     Route: 048

REACTIONS (1)
  - OEDEMA PERIPHERAL [None]
